FAERS Safety Report 5216999-X (Version None)
Quarter: 2007Q1

REPORT INFORMATION
  Report Type: 
  Country: None (occurrence: None)
  Receive Date: 20070124
  Receipt Date: 20070111
  Transmission Date: 20070707
  Serious: Yes (Hospitalization)
  Sender: FDA-Public Use
  Company Number: 2007CG00088

PATIENT
  Age: 70 Year
  Sex: Male

DRUGS (6)
  1. OMEPRAZOLE [Suspect]
     Route: 048
     Dates: start: 20060811, end: 20060912
  2. COUMADIN [Interacting]
     Route: 048
     Dates: start: 20060906
  3. COUMADIN [Interacting]
     Route: 048
  4. COUMADIN [Interacting]
     Route: 048
  5. VITAMIN B-12 [Concomitant]
     Route: 048
     Dates: start: 20060811, end: 20060919
  6. NICOPATCH [Concomitant]
     Route: 061

REACTIONS (2)
  - DRUG EFFECT DECREASED [None]
  - DRUG INTERACTION [None]
